FAERS Safety Report 4545281-9 (Version None)
Quarter: 2005Q1

REPORT INFORMATION
  Report Type: 
  Country: None (occurrence: None)
  Receive Date: 20050105
  Receipt Date: 20041228
  Transmission Date: 20050727
  Serious: Yes (Disabling, Other)
  Sender: FDA-Public Use
  Company Number: CA-JNJFOC-20041003607

PATIENT
  Sex: Female

DRUGS (3)
  1. TOPAMAX [Suspect]
     Route: 049
     Dates: start: 20040928, end: 20041007
  2. TOPAMAX [Suspect]
     Indication: EPILEPSY
     Route: 049
     Dates: start: 20040928, end: 20041007
  3. VALPROIC ACID [Concomitant]
     Dosage: (FOR MANY YEARS) TAKES EIGHT 250 MG TABLETS

REACTIONS (2)
  - ANGLE CLOSURE GLAUCOMA [None]
  - BLINDNESS [None]
